FAERS Safety Report 8296247-7 (Version None)
Quarter: 2012Q2

REPORT INFORMATION
  Report Type: 
  Country: None (occurrence: None)
  Receive Date: 20120418
  Receipt Date: 20120410
  Transmission Date: 20120825
  Serious: Yes (Other)
  Sender: FDA-Public Use
  Company Number: CHPA2011US11593

PATIENT
  Age: 57 Year
  Sex: Female

DRUGS (3)
  1. PHENYLEPHRINE HCL [Suspect]
     Indication: NASAL CONGESTION
     Dosage: 2 SPRAYS EACH NOSTRIL, 6 TIMES A DAY
     Dates: end: 20110801
  2. PHENYLEPHRINE HCL [Suspect]
     Indication: SEASONAL ALLERGY
  3. STEROIDS NOS [Concomitant]

REACTIONS (2)
  - DRUG DEPENDENCE [None]
  - INCORRECT DRUG ADMINISTRATION DURATION [None]
